FAERS Safety Report 25765438 (Version 1)
Quarter: 2025Q3

REPORT INFORMATION
  Report Type: Spontaneous
  Country: US (occurrence: US)
  Receive Date: 20250905
  Receipt Date: 20250905
  Transmission Date: 20251021
  Serious: No
  Sender: AUROBINDO
  Company Number: US-AUROBINDO-AUR-APL-2025-023693

PATIENT
  Age: 42 Year
  Sex: Female

DRUGS (1)
  1. IMATINIB MESYLATE [Suspect]
     Active Substance: IMATINIB MESYLATE
     Indication: Breast cancer
     Route: 065
     Dates: start: 20250424, end: 20250425

REACTIONS (2)
  - Tongue discomfort [Unknown]
  - Product coating issue [Unknown]

NARRATIVE: CASE EVENT DATE: 20250424
